FAERS Safety Report 7037122-5 (Version None)
Quarter: 2010Q4

REPORT INFORMATION
  Report Type: 
  Country: None (occurrence: None)
  Receive Date: 20101011
  Receipt Date: 20101006
  Transmission Date: 20110411
  Serious: Yes (Death, Hospitalization)
  Sender: FDA-Public Use
  Company Number: PHHY2010BR66597

PATIENT
  Age: 61 Year
  Sex: Female

DRUGS (3)
  1. CARBAMAZEPINE [Suspect]
     Dosage: 300 MG, UNK
  2. AMITRIPTYLINE [Concomitant]
     Dosage: 12.5 MG, UNK
  3. ANESTHETICS, LOCAL [Concomitant]
     Dosage: UNK

REACTIONS (22)
  - ARTHRALGIA [None]
  - CARDIOVASCULAR DISORDER [None]
  - CONJUNCTIVAL EROSION [None]
  - GENITAL EROSION [None]
  - MALAISE [None]
  - MUCOSAL EROSION [None]
  - MULTI-ORGAN FAILURE [None]
  - MYALGIA [None]
  - PAIN [None]
  - PURPURA [None]
  - PYREXIA [None]
  - RASH [None]
  - RASH ERYTHEMATOUS [None]
  - RASH GENERALISED [None]
  - RASH MACULO-PAPULAR [None]
  - RASH VESICULAR [None]
  - RESPIRATORY DISORDER [None]
  - SEPTIC SHOCK [None]
  - SKIN NECROSIS [None]
  - STEVENS-JOHNSON SYNDROME [None]
  - TOXIC EPIDERMAL NECROLYSIS [None]
  - URTICARIA [None]
